FAERS Safety Report 9351826 (Version 1)
Quarter: 2013Q2

REPORT INFORMATION
  Report Type: Spontaneous
  Country: DE (occurrence: None)
  Receive Date: 20130612
  Receipt Date: 20130612
  Transmission Date: 20140414
  Serious: Yes (Hospitalization, Disabling)
  Sender: FDA-Public Use
  Company Number: GER/GER/13/0029945

PATIENT
  Age: 86 Year
  Sex: Female

DRUGS (8)
  1. SIMVASTATIN [Suspect]
     Indication: PRODUCT USED FOR UNKNOWN INDICATION
     Route: 048
  2. CIPROFLOXACIN [Suspect]
     Indication: URINARY TRACT INFECTION
     Route: 048
     Dates: start: 20121227, end: 20130102
  3. RAMIPRIL (RAMPRIL) [Concomitant]
  4. LEVOTHYROXINE SODIUM (LEVOTHYROXINE SODIUM) [Concomitant]
  5. ALLOPURINOL (ALLOPURINOL SODIUM) [Concomitant]
  6. PANTOPRAZOLE (PANTROPRAZOLE) [Concomitant]
  7. PROCORALAN (IVABRADINE HYDROCHLORIDE) [Concomitant]
  8. BELOC-ZOK MITE (METOPROLOL SUCCINATE) [Concomitant]

REACTIONS (9)
  - Myalgia [None]
  - Gait disturbance [None]
  - Aspartate aminotransferase increased [None]
  - Alanine aminotransferase increased [None]
  - Gamma-glutamyltransferase increased [None]
  - Blood lactate dehydrogenase increased [None]
  - Renal failure acute [None]
  - Drug interaction [None]
  - Blood creatine phosphokinase increased [None]
